FAERS Safety Report 7674373-0 (Version None)
Quarter: 2011Q3

REPORT INFORMATION
  Report Type: 
  Country: None (occurrence: None)
  Receive Date: 20110810
  Receipt Date: 20110804
  Transmission Date: 20111222
  Serious: Yes (Other)
  Sender: FDA-Public Use
  Company Number: US-SHIRE-ALL1-2011-02600

PATIENT
  Sex: Male
  Weight: 25.669 kg

DRUGS (2)
  1. INTUNIV [Suspect]
     Dosage: 1 MG, 1X/DAY:QD
     Route: 048
     Dates: start: 20110725, end: 20110801
  2. INTUNIV [Suspect]
     Indication: ATTENTION DEFICIT/HYPERACTIVITY DISORDER
     Dosage: 2 MG, 1X/DAY:QD
     Route: 048
     Dates: start: 20110802, end: 20110804

REACTIONS (7)
  - DYSARTHRIA [None]
  - OROPHARYNGEAL PAIN [None]
  - SOMNOLENCE [None]
  - CONVULSION [None]
  - HYPOAESTHESIA [None]
  - STREPTOCOCCAL INFECTION [None]
  - LETHARGY [None]
